FAERS Safety Report 25599457 (Version 1)
Quarter: 2025Q3

REPORT INFORMATION
  Report Type: Spontaneous
  Country: GB (occurrence: GB)
  Receive Date: 20250724
  Receipt Date: 20250724
  Transmission Date: 20251021
  Serious: Yes (Hospitalization, Other)
  Sender: ADVANZ PHARMA
  Company Number: GB-ORESUND-25OPAJY0615P

PATIENT

DRUGS (5)
  1. PREDNISOLONE [Suspect]
     Active Substance: PREDNISOLONE
     Indication: VEXAS syndrome
  2. PREDNISOLONE [Suspect]
     Active Substance: PREDNISOLONE
  3. PREDNISOLONE [Suspect]
     Active Substance: PREDNISOLONE
  4. METHOTREXATE [Suspect]
     Active Substance: METHOTREXATE
     Indication: VEXAS syndrome
     Dosage: 15 MG, WEEKLY (15 MG ONCE WEEKLY)
  5. TOCILIZUMAB [Suspect]
     Active Substance: TOCILIZUMAB
     Indication: VEXAS syndrome

REACTIONS (13)
  - Scleritis [Recovered/Resolved]
  - Transfusion [Unknown]
  - Biopsy bone marrow [Unknown]
  - Stem cell transplant [Recovered/Resolved]
  - Infection [Unknown]
  - Symptom recurrence [Recovered/Resolved]
  - Paraesthesia [Not Recovered/Not Resolved]
  - Dyspnoea [Recovered/Resolved]
  - Swollen tongue [Recovered/Resolved]
  - Pharyngeal swelling [Recovered/Resolved]
  - Injection site reaction [Unknown]
  - Rash [Recovered/Resolved]
  - Drug ineffective [Unknown]
